FAERS Safety Report 8254666-9 (Version None)
Quarter: 2012Q2

REPORT INFORMATION
  Report Type: 
  Country: None (occurrence: None)
  Receive Date: 20120403
  Receipt Date: 20120326
  Transmission Date: 20120825
  Serious: Yes (Life-Threatening, Hospitalization)
  Sender: FDA-Public Use
  Company Number: ES-ELI_LILLY_AND_COMPANY-ES201203007680

PATIENT
  Sex: Female
  Weight: 63 kg

DRUGS (4)
  1. FORTEO [Suspect]
     Indication: OSTEOPOROSIS
     Dosage: 20 UG, QD
     Route: 058
     Dates: start: 20120307
  2. VESICARE                           /01735902/ [Concomitant]
     Indication: URINARY INCONTINENCE
     Dosage: 2 DF, QD
     Route: 048
  3. NEXIUM [Concomitant]
     Dosage: 40 MG, QD
     Route: 048
  4. NOLOTIL [Concomitant]
     Dosage: 3 DF, QD
     Route: 048

REACTIONS (1)
  - CEREBRAL HAEMORRHAGE [None]
